FAERS Safety Report 17149997 (Version 1)
Quarter: 2019Q4

REPORT INFORMATION
  Report Type: Spontaneous
  Country: NL (occurrence: NL)
  Receive Date: 20191213
  Receipt Date: 20191213
  Transmission Date: 20200122
  Serious: Yes (Other)
  Sender: FDA-Public Use
  Company Number: NL-ACCORD-165059

PATIENT
  Sex: Male
  Weight: 65 kg

DRUGS (4)
  1. ESOMEPRAZOLE/ESOMEPRAZOLE MAGNESIUM/ESOMEPRAZOLE SODIUM [Suspect]
     Active Substance: ESOMEPRAZOLE
     Indication: DIAPHRAGMATIC HERNIA
     Dosage: 1 X PER DAY, RESPECTIVELY. 40 MG
     Dates: start: 2010
  2. DOXAZOSIN [Suspect]
     Active Substance: DOXAZOSIN MESYLATE
     Indication: HYPERTENSION
     Dosage: 1 X PER DAY, RESPECTIVELY. 40 MG
     Dates: start: 2010
  3. HEPSERA [Suspect]
     Active Substance: ADEFOVIR DIPIVOXIL
     Indication: CHRONIC HEPATITIS B
     Dosage: STRENGTH 10 MG, 1 TABLET PER DAY
     Dates: start: 2005
  4. LABETALOL [Suspect]
     Active Substance: LABETALOL\LABETALOL HYDROCHLORIDE
     Indication: HYPERTENSION
     Dosage: 1 X PER DAY, RESPECTIVELY. 40 MG
     Dates: start: 2010

REACTIONS (1)
  - Deafness [Recovered/Resolved with Sequelae]
